FAERS Safety Report 18997191 (Version 1)
Quarter: 2021Q1

REPORT INFORMATION
  Report Type: Report from Study
  Country: DE (occurrence: DE)
  Receive Date: 20210311
  Receipt Date: 20210311
  Transmission Date: 20210420
  Serious: Yes (Other)
  Sender: FDA-Public Use
  Company Number: DE-CELGENEUS-DEU-20210301628

PATIENT
  Age: 28 Year
  Sex: Female
  Weight: 62.4 kg

DRUGS (7)
  1. GELOMYRTOL [Concomitant]
     Active Substance: HERBALS
     Indication: NASOPHARYNGITIS
     Route: 048
     Dates: start: 20170508, end: 20170828
  2. PROPOFOL. [Concomitant]
     Active Substance: PROPOFOL
     Dosage: 240 MILLIGRAM
     Route: 041
     Dates: start: 20180427, end: 20180427
  3. PROPOFOL. [Concomitant]
     Active Substance: PROPOFOL
     Dosage: 200 MILLIGRAM
     Route: 041
     Dates: start: 20190410, end: 20190410
  4. SALOFALK [Concomitant]
     Indication: COLITIS ULCERATIVE
     Dosage: 1 GRAM
     Route: 048
     Dates: start: 201501
  5. TRAMAL [Concomitant]
     Active Substance: TRAMADOL
     Indication: ABDOMINAL PAIN
     Dosage: 20 DROPS
     Route: 048
     Dates: start: 201605
  6. PROPOFOL. [Concomitant]
     Active Substance: PROPOFOL
     Indication: SEDATIVE THERAPY
     Dosage: 220 MILLIGRAM
     Route: 041
     Dates: start: 20170602, end: 20170602
  7. OZANIMOD. [Suspect]
     Active Substance: OZANIMOD
     Indication: COLITIS ULCERATIVE
     Dosage: 1 MILLIGRAM
     Route: 048
     Dates: start: 20170612, end: 20210122

REACTIONS (1)
  - Pregnancy [Unknown]

NARRATIVE: CASE EVENT DATE: 20210226
